FAERS Safety Report 7286112-6 (Version None)
Quarter: 2011Q1

REPORT INFORMATION
  Report Type: 
  Country: None (occurrence: None)
  Receive Date: 20110210
  Receipt Date: 20110128
  Transmission Date: 20110831
  Serious: Yes (Disabling, Other)
  Sender: FDA-Public Use
  Company Number: GB-MYLANLABS-2007S1008546

PATIENT
  Age: 9 Year
  Sex: Male

DRUGS (11)
  1. MERCAPTAMINE BITARTRATE [Suspect]
     Indication: CYSTINOSIS
     Route: 048
     Dates: start: 19980801
  2. PHOSPHATE /01684601/ [Concomitant]
     Dates: start: 20070601
  3. HGH [Concomitant]
     Dates: start: 20040622, end: 20070401
  4. ERYTHROPOETIN [Concomitant]
     Dates: start: 20050901
  5. INDOMETACIN [Concomitant]
     Dates: start: 20030101
  6. MERCAPTAMINE BITARTRATE [Suspect]
     Route: 048
     Dates: end: 20070101
  7. MERCAPTAMINE BITARTRATE [Suspect]
     Route: 048
     Dates: start: 20070901
  8. SODIUM BICARBONATE [Concomitant]
     Dates: start: 20070601
  9. ALFACALCIDOL [Concomitant]
     Dates: start: 20030101
  10. MERCAPTAMINE BITARTRATE [Suspect]
     Route: 048
  11. L-CARNITINE [Concomitant]
     Dates: start: 20010101

REACTIONS (5)
  - ELBOW DEFORMITY [None]
  - JOINT STIFFNESS [None]
  - IMPETIGO [None]
  - MULTIPLE EPIPHYSEAL DYSPLASIA [None]
  - ARTHRALGIA [None]
